FAERS Safety Report 12612060 (Version 2)
Quarter: 2016Q3

REPORT INFORMATION
  Report Type: Spontaneous
  Country: US (occurrence: US)
  Receive Date: 20160801
  Receipt Date: 20160826
  Transmission Date: 20161109
  Serious: Yes (Hospitalization, Other)
  Sender: FDA-Public Use
  Company Number: US-JNJFOC-20160705591

PATIENT
  Age: 81 Year
  Sex: Female

DRUGS (8)
  1. ASPIRIN. [Suspect]
     Active Substance: ASPIRIN
     Indication: ATRIAL FLUTTER
     Route: 065
  2. XARELTO [Suspect]
     Active Substance: RIVAROXABAN
     Indication: CEREBROVASCULAR ACCIDENT PROPHYLAXIS
     Route: 048
     Dates: start: 20141019
  3. XARELTO [Suspect]
     Active Substance: RIVAROXABAN
     Indication: EMBOLISM
     Route: 048
     Dates: start: 20150507, end: 20151126
  4. XARELTO [Suspect]
     Active Substance: RIVAROXABAN
     Indication: ATRIAL FIBRILLATION
     Route: 048
     Dates: start: 20141019
  5. ELIQUIS [Suspect]
     Active Substance: APIXABAN
     Indication: ANTICOAGULANT THERAPY
     Route: 065
  6. XARELTO [Suspect]
     Active Substance: RIVAROXABAN
     Indication: CEREBROVASCULAR ACCIDENT PROPHYLAXIS
     Route: 048
     Dates: start: 20150507, end: 20151126
  7. XARELTO [Suspect]
     Active Substance: RIVAROXABAN
     Indication: EMBOLISM
     Route: 048
     Dates: start: 20141019
  8. XARELTO [Suspect]
     Active Substance: RIVAROXABAN
     Indication: ATRIAL FIBRILLATION
     Route: 048
     Dates: start: 20150507, end: 20151126

REACTIONS (4)
  - Haematoma [Recovering/Resolving]
  - Subdural haematoma [Unknown]
  - Gastrointestinal haemorrhage [Recovered/Resolved]
  - Wound infection [Not Recovered/Not Resolved]

NARRATIVE: CASE EVENT DATE: 20141018
